FAERS Safety Report 7380074-9 (Version None)
Quarter: 2011Q1

REPORT INFORMATION
  Report Type: 
  Country: None (occurrence: None)
  Receive Date: 20110318
  Receipt Date: 20110308
  Transmission Date: 20110831
  Serious: Yes (Death)
  Sender: FDA-Public Use
  Company Number: FK201100433

PATIENT
  Age: 71 Year
  Sex: Female

DRUGS (3)
  1. DACARBAZINE [Suspect]
     Indication: MULTIPLE MYELOMA
     Dosage: (5000 MG)
  2. NIMUSTINE HYDROCHLORIDE (NIMUSTINE HYDROCHLORIDE) (NIMUSTINE HYDROCHLO [Suspect]
     Indication: MULTIPLE MYELOMA
     Dosage: (500 MG)
  3. VINCRISTINE SULFATE [Suspect]
     Indication: MULTIPLE MYELOMA
     Dosage: (5 MG)

REACTIONS (6)
  - FOOT AMPUTATION [None]
  - CHROMOSOME ANALYSIS ABNORMAL [None]
  - FATIGUE [None]
  - MYELODYSPLASTIC SYNDROME [None]
  - DISSEMINATED INTRAVASCULAR COAGULATION [None]
  - REFRACTORY ANAEMIA WITH AN EXCESS OF BLASTS [None]
